FAERS Safety Report 12588381 (Version 1)
Quarter: 2016Q3

REPORT INFORMATION
  Report Type: Spontaneous
  Country: US (occurrence: US)
  Receive Date: 20160725
  Receipt Date: 20160725
  Transmission Date: 20161109
  Serious: No
  Sender: FDA-Public Use
  Company Number: US-JNJFOC-20160528133

PATIENT
  Age: 82 Year
  Sex: Female
  Weight: 52.16 kg

DRUGS (3)
  1. ZYRTEC [Suspect]
     Active Substance: CETIRIZINE HYDROCHLORIDE
     Route: 048
  2. ZYRTEC [Suspect]
     Active Substance: CETIRIZINE HYDROCHLORIDE
     Indication: MULTIPLE ALLERGIES
     Dosage: 1X
     Route: 048
     Dates: end: 20160527
  3. BENZOCAINE. [Concomitant]
     Active Substance: BENZOCAINE
     Indication: UNEVALUABLE EVENT
     Route: 065

REACTIONS (1)
  - Vertigo [Recovering/Resolving]
